FAERS Safety Report 12696855 (Version 1)
Quarter: 2016Q3

REPORT INFORMATION
  Report Type: Spontaneous
  Country: CN (occurrence: CN)
  Receive Date: 20160830
  Receipt Date: 20160830
  Transmission Date: 20161109
  Serious: Yes (Other)
  Sender: FDA-Public Use
  Company Number: CN-ROCHE-1822537

PATIENT
  Age: 80 Year
  Sex: Female
  Weight: 40 kg

DRUGS (1)
  1. ACTILYSE [Suspect]
     Active Substance: ALTEPLASE
     Indication: THROMBOLYSIS
     Dosage: DOSE: 3.6 MG AND 32.4 MG
     Route: 042
     Dates: start: 20160605, end: 20160605

REACTIONS (2)
  - Respiratory failure [Unknown]
  - Hypotension [Unknown]

NARRATIVE: CASE EVENT DATE: 20160605
